FAERS Safety Report 23648458 (Version 1)
Quarter: 2024Q1

REPORT INFORMATION
  Report Type: Spontaneous
  Country: AU (occurrence: AU)
  Receive Date: 20240319
  Receipt Date: 20240319
  Transmission Date: 20240410
  Serious: Yes (Death, Hospitalization)
  Sender: FDA-Public Use
  Company Number: AU-JNJFOC-20240334641

PATIENT
  Age: 64 Year
  Sex: Male

DRUGS (1)
  1. VELCADE [Suspect]
     Active Substance: BORTEZOMIB
     Indication: Plasma cell myeloma
     Dosage: UNK
     Route: 058
     Dates: start: 20220308, end: 20220308

REACTIONS (8)
  - Thrombosis [Fatal]
  - Malnutrition [Fatal]
  - Acute kidney injury [Fatal]
  - Gastrointestinal haemorrhage [Fatal]
  - Abdominal pain [Fatal]
  - Sepsis [Fatal]
  - Enterocolitis [Fatal]
  - Diarrhoea [Fatal]

NARRATIVE: CASE EVENT DATE: 20220320
